FAERS Safety Report 6325289-3 (Version None)
Quarter: 2009Q3

REPORT INFORMATION
  Report Type: 
  Country: None (occurrence: None)
  Receive Date: 20090824
  Receipt Date: 20090717
  Transmission Date: 20100115
  Serious: No
  Sender: FDA-Public Use
  Company Number: US-ABBOTT-09P-163-0585681-00

PATIENT
  Sex: Male
  Weight: 83.99 kg

DRUGS (8)
  1. NIASPAN [Suspect]
     Indication: HIGH DENSITY LIPOPROTEIN DECREASED
     Route: 048
     Dates: start: 20090601
  2. NIASPAN [Suspect]
     Route: 048
     Dates: end: 20090601
  3. MICARDIS [Concomitant]
     Indication: HYPERTENSION
  4. TOPROL-XL [Concomitant]
     Indication: HYPERTENSION
  5. CRESTOR [Concomitant]
     Indication: BLOOD CHOLESTEROL INCREASED
  6. PLAVIX [Concomitant]
     Indication: CORONARY ARTERIAL STENT INSERTION
  7. ASPIRIN [Concomitant]
     Indication: PROPHYLAXIS
  8. ALLEGRA [Concomitant]
     Indication: HYPERSENSITIVITY

REACTIONS (3)
  - GENERALISED ERYTHEMA [None]
  - PRURITUS [None]
  - RASH PAPULAR [None]
